FAERS Safety Report 10055673 (Version 1)
Quarter: 2014Q2

REPORT INFORMATION
  Report Type: Spontaneous
  Country: US (occurrence: None)
  Receive Date: 20140402
  Receipt Date: 20140402
  Transmission Date: 20141212
  Serious: Yes (Disabling)
  Sender: FDA-Public Use
  Company Number: None

PATIENT
  Age: 59 Year
  Sex: Female
  Weight: 65.77 kg

DRUGS (1)
  1. ZOLPIDEM TARTRATE [Suspect]
     Indication: SLEEP DISORDER THERAPY
     Dosage: TAKE 1/2 TO 1 TABLET
     Route: 048

REACTIONS (21)
  - Gastrointestinal disorder [None]
  - Bladder disorder [None]
  - Urinary tract infection [None]
  - Burning sensation [None]
  - Musculoskeletal pain [None]
  - Chest pain [None]
  - Cholecystectomy [None]
  - Hypoaesthesia [None]
  - Hypoaesthesia [None]
  - Muscle tightness [None]
  - Hypoaesthesia [None]
  - Ear discomfort [None]
  - Vibratory sense increased [None]
  - Drug withdrawal syndrome [None]
  - Chills [None]
  - Diarrhoea [None]
  - Insomnia [None]
  - Neuralgia [None]
  - Genital burning sensation [None]
  - Burning sensation [None]
  - Arthralgia [None]
